FAERS Safety Report 16979719 (Version 3)
Quarter: 2021Q2

REPORT INFORMATION
  Report Type: Report from Study
  Country: CO (occurrence: CO)
  Receive Date: 20191031
  Receipt Date: 20210630
  Transmission Date: 20210716
  Serious: Yes (Hospitalization, Other)
  Sender: FDA-Public Use
  Company Number: CO-ASTELLAS-2019US043105

PATIENT
  Age: 34 Year
  Sex: Male
  Weight: 52 kg

DRUGS (4)
  1. MYCOPHENOLATE MOFETIL. [Concomitant]
     Active Substance: MYCOPHENOLATE MOFETIL
     Indication: RENAL TRANSPLANT
     Route: 048
     Dates: start: 20160821
  2. PREDNISOLONE. [Concomitant]
     Active Substance: PREDNISOLONE
     Indication: RENAL TRANSPLANT
     Route: 048
     Dates: start: 20160821
  3. TACROLIMUS. [Suspect]
     Active Substance: TACROLIMUS
     Indication: RENAL TRANSPLANT
     Dosage: 8 MG, ONCE DAILY (1 CAPSULE OF 5 MG AND 1 CAPSULE OF 3 MG)
     Route: 048
     Dates: start: 20160821
  4. OMEPRAZOLE. [Concomitant]
     Active Substance: OMEPRAZOLE
     Indication: PRODUCT USED FOR UNKNOWN INDICATION
     Route: 065

REACTIONS (5)
  - Gastrointestinal bacterial infection [Recovered/Resolved]
  - Diarrhoea [Recovered/Resolved]
  - Blood creatinine increased [Recovered/Resolved]
  - Abdominal pain upper [Recovered/Resolved]
  - COVID-19 [Unknown]

NARRATIVE: CASE EVENT DATE: 20191011
